FAERS Safety Report 6136363-9 (Version None)
Quarter: 2009Q1

REPORT INFORMATION
  Report Type: 
  Country: None (occurrence: None)
  Receive Date: 20090325
  Receipt Date: 20090312
  Transmission Date: 20090719
  Serious: Yes (Other)
  Sender: FDA-Public Use
  Company Number: 238671J08USA

PATIENT
  Age: 34 Year
  Sex: Male
  Weight: 70 kg

DRUGS (2)
  1. REBIF [Suspect]
     Indication: MULTIPLE SCLEROSIS
     Dosage: 44 MCG, 3 IN 1 WEEKS, SUBCUTANEOUS
     Route: 058
     Dates: start: 20030909
  2. PROVIGIL [Concomitant]

REACTIONS (3)
  - INGROWN HAIR [None]
  - STAPHYLOCOCCAL SKIN INFECTION [None]
  - SUBCUTANEOUS ABSCESS [None]
